FAERS Safety Report 4521559-X (Version None)
Quarter: 2004Q4

REPORT INFORMATION
  Report Type: 
  Country: None (occurrence: None)
  Receive Date: 20041208
  Receipt Date: 20041208
  Transmission Date: 20050328
  Serious: Yes (Other)
  Sender: FDA-Public Use
  Company Number: None

PATIENT
  Age: 10 Year
  Sex: Male

DRUGS (1)
  1. EQUATE EXTRA MOISTURIZING NASAL SPRAY,  1.25 FL OZ [Suspect]
     Indication: NASAL CONGESTION

REACTIONS (3)
  - APPLICATION SITE BURNING [None]
  - NASAL DISCOMFORT [None]
  - NASAL MUCOSAL DISORDER [None]
